FAERS Safety Report 24411725 (Version 1)
Quarter: 2024Q4

REPORT INFORMATION
  Report Type: Spontaneous
  Country: US (occurrence: US)
  Receive Date: 20241008
  Receipt Date: 20241008
  Transmission Date: 20250115
  Serious: No
  Sender: ALEXION PHARMACEUTICALS
  Company Number: US-ASTRAZENECA-202409USA010478US

PATIENT

DRUGS (8)
  1. CRESTOR [Interacting]
     Active Substance: ROSUVASTATIN CALCIUM
     Indication: Hyperlipidaemia
     Dosage: 1 DOSAGE FORM, QHS
  2. CRESTOR [Interacting]
     Active Substance: ROSUVASTATIN CALCIUM
     Dosage: 1 DOSAGE FORM, QHS
  3. VYNDAMAX [Interacting]
     Active Substance: TAFAMIDIS
     Dosage: 61 MILLIGRAM, QD
  4. VYNDAMAX [Interacting]
     Active Substance: TAFAMIDIS
     Dosage: 61 MILLIGRAM, QD
  5. VYNDAMAX [Interacting]
     Active Substance: TAFAMIDIS
     Dosage: 61 MILLIGRAM, QD
  6. VYNDAMAX [Interacting]
     Active Substance: TAFAMIDIS
     Dosage: 61 MILLIGRAM, QD
  7. FARXIGA [Concomitant]
     Active Substance: DAPAGLIFLOZIN PROPANEDIOL
  8. FARXIGA [Concomitant]
     Active Substance: DAPAGLIFLOZIN PROPANEDIOL

REACTIONS (2)
  - Left ventricular hypertrophy [Unknown]
  - Drug interaction [Unknown]
